FAERS Safety Report 4345698-1 (Version None)
Quarter: 2004Q2

REPORT INFORMATION
  Report Type: 
  Country: None (occurrence: None)
  Receive Date: 20040421
  Receipt Date: 20040410
  Transmission Date: 20050107
  Serious: Yes (Other)
  Sender: FDA-Public Use
  Company Number: 2004007148

PATIENT
  Age: 12 Year
  Sex: Female

DRUGS (1)
  1. DILANTIN [Suspect]
     Indication: CONVULSION

REACTIONS (3)
  - AGITATION [None]
  - CONVULSION [None]
  - DRUG WITHDRAWAL SYNDROME [None]
